FAERS Safety Report 9304032 (Version 1)
Quarter: 2013Q2

REPORT INFORMATION
  Report Type: Spontaneous
  Country: JP (occurrence: JP)
  Receive Date: 20130522
  Receipt Date: 20130522
  Transmission Date: 20140414
  Serious: Yes (Other)
  Sender: FDA-Public Use
  Company Number: PHHY2013JP050175

PATIENT
  Age: 53 Year
  Sex: Male

DRUGS (5)
  1. FUROSEMIDE [Suspect]
     Dosage: 60 MG, PER DAY
     Dates: start: 201111
  2. FUROSEMIDE [Suspect]
     Dosage: 20 MG, UNK
  3. TORASEMIDE [Suspect]
     Dosage: 4 MG, PER DAY
     Dates: start: 201111
  4. TRICHLORMETHIAZIDE [Suspect]
     Dosage: 4 MG, PER DAY
     Dates: start: 201111
  5. TOLVAPTAN [Concomitant]

REACTIONS (2)
  - Renal impairment [Unknown]
  - Hyponatraemia [Unknown]
